FAERS Safety Report 4482209-4 (Version None)
Quarter: 2004Q4

REPORT INFORMATION
  Report Type: 
  Country: None (occurrence: None)
  Receive Date: 20041020
  Receipt Date: 20041006
  Transmission Date: 20050328
  Serious: Yes (Other)
  Sender: FDA-Public Use
  Company Number: USA040979207

PATIENT
  Age: 38 Year
  Sex: Male
  Weight: 89 kg

DRUGS (4)
  1. STRATTERA [Suspect]
     Indication: ATTENTION DEFICIT/HYPERACTIVITY DISORDER
     Dosage: 20 MG AS NEEDED
     Dates: start: 20040801
  2. SEROQUEL [Concomitant]
  3. XANAX (ALPRAZOLAM DUM) [Concomitant]
  4. RITALIN [Concomitant]

REACTIONS (3)
  - BLINDNESS TRANSIENT [None]
  - COLOUR BLINDNESS [None]
  - VISION BLURRED [None]
